FAERS Safety Report 9982613 (Version 1)
Quarter: 2014Q1

REPORT INFORMATION
  Report Type: Report from Study
  Country: US (occurrence: US)
  Receive Date: 20140307
  Receipt Date: 20140307
  Transmission Date: 20141002
  Serious: Yes (Other)
  Sender: FDA-Public Use
  Company Number: US-ABBVIE-13P-163-1180781-00

PATIENT
  Age: 66 Year
  Sex: Female
  Weight: 68.1 kg

DRUGS (7)
  1. HUMIRA [Suspect]
     Indication: COLITIS ULCERATIVE
     Route: 058
     Dates: start: 201303, end: 201310
  2. HUMIRA [Suspect]
     Route: 058
     Dates: start: 20131107
  3. ASACOL [Concomitant]
     Indication: COLITIS ULCERATIVE
  4. 6-MP [Concomitant]
     Indication: COLITIS ULCERATIVE
  5. ZOLOFT [Concomitant]
     Indication: DEPRESSION
  6. WELLBUTRIN [Concomitant]
     Indication: PRODUCT USED FOR UNKNOWN INDICATION
  7. SIMVASTATIN [Concomitant]
     Indication: BLOOD CHOLESTEROL

REACTIONS (3)
  - Radius fracture [Recovered/Resolved]
  - Upper respiratory tract infection [Recovered/Resolved]
  - Fall [Recovered/Resolved]
